FAERS Safety Report 10349714 (Version 1)
Quarter: 2014Q3

REPORT INFORMATION
  Report Type: Spontaneous
  Country: IT (occurrence: IT)
  Receive Date: 20140730
  Receipt Date: 20140730
  Transmission Date: 20150326
  Serious: Yes (Disabling)
  Sender: FDA-Public Use
  Company Number: PHHY2014IT091921

PATIENT
  Sex: Male

DRUGS (10)
  1. CABAZITAXEL [Concomitant]
     Active Substance: CABAZITAXEL
     Dosage: UNK UKN, UNK
     Dates: start: 201308, end: 20131227
  2. XGEVA [Concomitant]
     Active Substance: DENOSUMAB
     Dosage: 120 MG,PER MONTH
     Dates: start: 201403, end: 201406
  3. LANSOPRAZOLE. [Concomitant]
     Active Substance: LANSOPRAZOLE
     Dosage: 30 MG, UNK
  4. ABIRATERONE [Concomitant]
     Active Substance: ABIRATERONE
     Dosage: UNK UKN, UNK
     Dates: start: 20131227
  5. NORVASC [Concomitant]
     Active Substance: AMLODIPINE BESYLATE
     Dosage: UNK UKN, UNK
  6. DIBASE [Concomitant]
     Active Substance: CHOLECALCIFEROL
     Dosage: UNK UKN, UNK
  7. CONGESCOR [Concomitant]
     Active Substance: BISOPROLOL
     Dosage: UNK UKN, UNK
  8. ZOMETA [Suspect]
     Active Substance: ZOLEDRONIC ACID
     Indication: METASTASES TO BONE
     Dosage: UNK UKN, UNK
     Dates: start: 20110701, end: 20140201
  9. LUTEINIZING HORMONE-RELEASING HORMONE [Concomitant]
     Active Substance: LUTEINIZING HORMONE
     Dosage: UNK UKN, UNK
     Dates: start: 2011
  10. BICALUTAMIDE. [Concomitant]
     Active Substance: BICALUTAMIDE
     Dosage: UNK UKN, UNK
     Dates: start: 2011

REACTIONS (1)
  - Osteonecrosis of jaw [Not Recovered/Not Resolved]

NARRATIVE: CASE EVENT DATE: 20140101
